FAERS Safety Report 5241918-X (Version None)
Quarter: 2007Q1

REPORT INFORMATION
  Report Type: 
  Country: None (occurrence: None)
  Receive Date: 20070220
  Receipt Date: 20070214
  Transmission Date: 20070707
  Serious: Yes (Other)
  Sender: FDA-Public Use
  Company Number: US-SHR-US-2007-005369

PATIENT

DRUGS (1)
  1. MAGNEVIST [Suspect]
     Dosage: UNK, 1 DOSE

REACTIONS (1)
  - RENAL FAILURE ACUTE [None]
